FAERS Safety Report 10438177 (Version 1)
Quarter: 2014Q3

REPORT INFORMATION
  Report Type: Spontaneous
  Country: US (occurrence: US)
  Receive Date: 20140908
  Receipt Date: 20140908
  Transmission Date: 20150326
  Serious: Yes (Other)
  Sender: FDA-Public Use
  Company Number: US-BRISTOL-MYERS SQUIBB COMPANY-21095724

PATIENT
  Age: 62 Year
  Sex: Female
  Weight: 50.79 kg

DRUGS (11)
  1. CLONAZEPAM. [Concomitant]
     Active Substance: CLONAZEPAM
  2. ABILIFY [Suspect]
     Active Substance: ARIPIPRAZOLE
  3. KLONOPIN [Concomitant]
     Active Substance: CLONAZEPAM
  4. LOMOTIL [Concomitant]
     Active Substance: ATROPINE SULFATE\DIPHENOXYLATE HYDROCHLORIDE
  5. PERPHENAZINE. [Concomitant]
     Active Substance: PERPHENAZINE
     Dosage: 2 MG
  6. TRAZODONE HYDROCHLORIDE. [Concomitant]
     Active Substance: TRAZODONE HYDROCHLORIDE
  7. IBUPROFENE [Concomitant]
     Active Substance: IBUPROFEN
     Dosage: AS NEEDED
  8. TRAMADOL [Concomitant]
     Active Substance: TRAMADOL
  9. BENADRYL [Concomitant]
     Active Substance: DIPHENHYDRAMINE HYDROCHLORIDE
  10. ZYRTEC [Concomitant]
     Active Substance: CETIRIZINE HYDROCHLORIDE
  11. VISTARIL [Concomitant]
     Active Substance: HYDROXYZINE PAMOATE

REACTIONS (6)
  - Dysphagia [Unknown]
  - Headache [Unknown]
  - Drug dose omission [Unknown]
  - Poor quality sleep [Unknown]
  - Diarrhoea [Unknown]
  - Myalgia [Unknown]
